FAERS Safety Report 20163129 (Version 1)
Quarter: 2021Q4

REPORT INFORMATION
  Report Type: Spontaneous
  Country: CA (occurrence: CA)
  Receive Date: 20211209
  Receipt Date: 20211209
  Transmission Date: 20220304
  Serious: Yes (Death)
  Sender: FDA-Public Use
  Company Number: None

PATIENT
  Age: 11 Year
  Sex: Male
  Weight: 25 kg

DRUGS (11)
  1. IRINOTECAN HYDROCHLORIDE [Suspect]
     Active Substance: IRINOTECAN HYDROCHLORIDE
     Indication: Neuroblastoma recurrent
     Route: 065
  2. GABAPENTIN [Suspect]
     Active Substance: GABAPENTIN
     Indication: Pain
     Route: 065
  3. TEMOZOLOMIDE [Suspect]
     Active Substance: TEMOZOLOMIDE
     Indication: Neuroblastoma recurrent
     Route: 065
  4. CANNABIDIOL [Suspect]
     Active Substance: CANNABIDIOL
     Indication: Pain
     Route: 065
  5. DEXAMETHASONE SODIUM PHOSPHATE [Suspect]
     Active Substance: DEXAMETHASONE SODIUM PHOSPHATE
     Indication: Neoplasm progression
     Route: 065
  6. DINUTUXIMAB [Suspect]
     Active Substance: DINUTUXIMAB
     Indication: Neuroblastoma recurrent
     Dosage: CYCLIC
     Route: 042
  7. FAMOTIDINE [Suspect]
     Active Substance: FAMOTIDINE
     Indication: Gastric disorder
     Route: 065
  8. HYDROMORPHONE HYDROCHLORIDE [Suspect]
     Active Substance: HYDROMORPHONE HYDROCHLORIDE
     Indication: Pain
     Route: 065
  9. LORAZEPAM [Suspect]
     Active Substance: LORAZEPAM
     Indication: Anxiety
     Route: 042
  10. LORLATINIB [Suspect]
     Active Substance: LORLATINIB
     Indication: Neuroblastoma recurrent
     Route: 048
  11. METHADONE HYDROCHLORIDE [Suspect]
     Active Substance: METHADONE HYDROCHLORIDE
     Indication: Pain
     Route: 065

REACTIONS (13)
  - Anaemia [Fatal]
  - Fatigue [Fatal]
  - Leukocytosis [Fatal]
  - Malignant cranial nerve neoplasm [Fatal]
  - Metastases to liver [Fatal]
  - Metastases to spine [Fatal]
  - Nerve compression [Fatal]
  - Neuroblastoma recurrent [Fatal]
  - Pallor [Fatal]
  - Retro-orbital neoplasm [Fatal]
  - Thrombocytopenia [Fatal]
  - Condition aggravated [Fatal]
  - Off label use [Unknown]
